FAERS Safety Report 24658603 (Version 1)
Quarter: 2024Q4

REPORT INFORMATION
  Report Type: Spontaneous
  Country: US (occurrence: US)
  Receive Date: 20241125
  Receipt Date: 20241125
  Transmission Date: 20250115
  Serious: Yes (Life-Threatening, Hospitalization, Other)
  Sender: AMGEN
  Company Number: US-AMGEN-USASP2024232693

PATIENT
  Age: 33 Year
  Sex: Female

DRUGS (4)
  1. PREDNISONE [Suspect]
     Active Substance: PREDNISONE
     Indication: Immunosuppressant drug therapy
     Dosage: UNK
     Route: 065
  2. CYCLOSPORINE [Concomitant]
     Active Substance: CYCLOSPORINE
     Indication: Immunosuppressant drug therapy
     Dosage: UNK
  3. MYCOPHENOLATE SODIUM [Concomitant]
     Active Substance: MYCOPHENOLATE SODIUM
     Indication: Immunosuppressant drug therapy
  4. CLOPIDOGREL [Concomitant]
     Active Substance: CLOPIDOGREL BISULFATE

REACTIONS (22)
  - Acute respiratory failure [Unknown]
  - Cardiac arrest [Unknown]
  - Acute kidney injury [Unknown]
  - COVID-19 [Unknown]
  - Metabolic acidosis [Unknown]
  - Anuria [Unknown]
  - Streptococcus test positive [Unknown]
  - Staphylococcus test positive [Unknown]
  - Atrial fibrillation [Unknown]
  - Ventricular fibrillation [Unknown]
  - Arterial thrombosis [Unknown]
  - Renal-limited thrombotic microangiopathy [Unknown]
  - Renal infarct [Unknown]
  - Septic shock [Unknown]
  - Gastrointestinal haemorrhage [Unknown]
  - Hyperhomocysteinaemia [Unknown]
  - Inflammatory marker increased [Unknown]
  - Lung opacity [Unknown]
  - White blood cells urine positive [Unknown]
  - Red blood cells urine positive [Unknown]
  - Urinary sediment present [Unknown]
  - Bacterial test positive [Unknown]
